FAERS Safety Report 18559660 (Version 1)
Quarter: 2020Q4

REPORT INFORMATION
  Report Type: Spontaneous
  Country: US (occurrence: US)
  Receive Date: 20201130
  Receipt Date: 20201130
  Transmission Date: 20210114
  Serious: No
  Sender: FDA-Public Use
  Company Number: US-VITRUVIAS THERAPEUTICS-2096431

PATIENT
  Age: 70 Year
  Sex: Female

DRUGS (6)
  1. THYROID TINCTURE [Concomitant]
  2. LIDOCAINE. [Suspect]
     Active Substance: LIDOCAINE
     Route: 061
  3. CBD [Concomitant]
     Active Substance: CANNABIDIOL
  4. MARIJUANA [Concomitant]
     Active Substance: CANNABIS SATIVA SUBSP. INDICA TOP
  5. NATURAL TINCTURES [Concomitant]
  6. CHINESE PLASTER PATCHES [Concomitant]

REACTIONS (2)
  - Lethargy [Recovered/Resolved]
  - Somnolence [Recovered/Resolved]
